FAERS Safety Report 6704752-7 (Version None)
Quarter: 2010Q2

REPORT INFORMATION
  Report Type: 
  Country: None (occurrence: None)
  Receive Date: 20100430
  Receipt Date: 20091020
  Transmission Date: 20101027
  Serious: No
  Sender: FDA-Public Use
  Company Number: US-BAUSCH-2009BL005286

PATIENT
  Age: 49 Year
  Sex: Female
  Weight: 50 kg

DRUGS (3)
  1. ALREX [Suspect]
     Indication: ARTHROPOD BITE
     Route: 047
     Dates: start: 20091019
  2. CLARITIN /USA/ [Concomitant]
     Indication: EYELID OEDEMA
     Route: 048
     Dates: start: 20091019, end: 20091019
  3. ADVIL [Concomitant]
     Indication: EYELID PAIN
     Route: 048
     Dates: start: 20091019, end: 20091019

REACTIONS (2)
  - EYELID OEDEMA [None]
  - URTICARIA [None]
